FAERS Safety Report 15334021 (Version 1)
Quarter: 2018Q3

REPORT INFORMATION
  Report Type: Spontaneous
  Country: US (occurrence: US)
  Receive Date: 20180826
  Receipt Date: 20180826
  Transmission Date: 20181010
  Serious: Yes (Other)
  Sender: FDA-Public Use
  Company Number: None

PATIENT
  Age: 68 Year
  Sex: Female
  Weight: 72 kg

DRUGS (12)
  1. SELENIUM [Concomitant]
     Active Substance: SELENIUM
  2. ZINC. [Concomitant]
     Active Substance: ZINC
  3. ALPRAZOLAM GENERIC FOR XANAX .25 MG X 2 PER DAY [Suspect]
     Active Substance: ALPRAZOLAM
     Indication: BLOOD PRESSURE ABNORMAL
     Dosage: ?          QUANTITY:2 TABLET(S);?
     Route: 048
     Dates: start: 20120201, end: 20171001
  4. VITAMIN D [Concomitant]
     Active Substance: CHOLECALCIFEROL
  5. NP THYROID [Concomitant]
     Active Substance: LEVOTHYROXINE\LIOTHYRONINE
  6. LIOTHYRONINE [Concomitant]
     Active Substance: LIOTHYRONINE
  7. ALPRAZOLAM GENERIC FOR XANAX .25 MG X 2 PER DAY [Suspect]
     Active Substance: ALPRAZOLAM
     Indication: ANXIETY
     Dosage: ?          QUANTITY:2 TABLET(S);?
     Route: 048
     Dates: start: 20120201, end: 20171001
  8. ALPRAZOLAM GENERIC FOR XANAX .25 MG X 2 PER DAY [Suspect]
     Active Substance: ALPRAZOLAM
     Indication: MUSCLE SPASMS
     Dosage: ?          QUANTITY:2 TABLET(S);?
     Route: 048
     Dates: start: 20120201, end: 20171001
  9. VITAMIN B COMPLEX [Concomitant]
     Active Substance: CYANOCOBALAMIN\DEXPANTHENOL\NIACINAMIDE\PYRIDOXINE HYDROCHLORIDE\RIBOFLAVIN 5^-PHOSPHATE SODIUM\THIAMINE HYDROCHLORIDE\VITAMIN B COMPLEX
  10. POTASSIUM [Concomitant]
     Active Substance: POTASSIUM
  11. VITAMIN C [Concomitant]
     Active Substance: ASCORBIC ACID
  12. MAGNESIUM [Concomitant]
     Active Substance: MAGNESIUM

REACTIONS (11)
  - Tinnitus [None]
  - Hypoaesthesia [None]
  - Insomnia [None]
  - Pain [None]
  - Gastrooesophageal reflux disease [None]
  - Neuropathy peripheral [None]
  - Anxiety [None]
  - Body temperature abnormal [None]
  - Muscle atrophy [None]
  - Dysphonia [None]
  - Muscle spasms [None]

NARRATIVE: CASE EVENT DATE: 20170901
